FAERS Safety Report 24171177 (Version 1)
Quarter: 2024Q3

REPORT INFORMATION
  Report Type: Report from Study
  Country: US (occurrence: US)
  Receive Date: 20240805
  Receipt Date: 20240805
  Transmission Date: 20241017
  Serious: No
  Sender: RANBAXY
  Company Number: US-SUN PHARMACEUTICAL INDUSTRIES LTD-2022R1-365922

PATIENT
  Sex: Male

DRUGS (1)
  1. SONIDEGIB [Suspect]
     Active Substance: SONIDEGIB
     Indication: Product used for unknown indication
     Dosage: QTY : 30, SUPPLY: 30, REFILL: 6
     Route: 065

REACTIONS (2)
  - Alopecia [Unknown]
  - Diarrhoea [Unknown]
